FAERS Safety Report 6097162-X (Version None)
Quarter: 2009Q1

REPORT INFORMATION
  Report Type: 
  Country: None (occurrence: None)
  Receive Date: 20090227
  Receipt Date: 20090226
  Transmission Date: 20090719
  Serious: Yes (Other)
  Sender: FDA-Public Use
  Company Number: A0770355A

PATIENT
  Sex: Male

DRUGS (3)
  1. ALLI [Suspect]
     Indication: WEIGHT LOSS DIET
     Route: 048
  2. UNSPECIFIED MEDICATION [Suspect]
     Indication: ATRIAL FIBRILLATION
     Route: 065
  3. UNSPECIFIED MEDICATION [Suspect]
     Route: 065

REACTIONS (3)
  - ATRIAL FIBRILLATION [None]
  - BLOOD PRESSURE INCREASED [None]
  - DRUG INTERACTION [None]
